FAERS Safety Report 5285789-4 (Version None)
Quarter: 2007Q1

REPORT INFORMATION
  Report Type: 
  Country: None (occurrence: None)
  Receive Date: 20070116
  Receipt Date: 20061106
  Transmission Date: 20070707
  Serious: Yes (Hospitalization)
  Sender: FDA-Public Use
  Company Number: 2006SP003939

PATIENT
  Age: 64 Year
  Sex: Female

DRUGS (8)
  1. LUNESTA [Suspect]
     Indication: INSOMNIA
     Dosage: 2 MG;ORAL
     Route: 048
     Dates: start: 20061001, end: 20061001
  2. ZOLOFT [Suspect]
     Indication: DEPRESSION
     Dosage: 25 MG;ORAL
     Route: 048
     Dates: start: 20061001, end: 20061001
  3. ZESTRIL [Concomitant]
  4. CARDIZEM [Concomitant]
  5. METOPROLOL SUCCINATE [Concomitant]
  6. PRAVACHOL [Concomitant]
  7. ACETYLSALICYLIC ACID SRT [Concomitant]
  8. DETROL [Concomitant]

REACTIONS (1)
  - GLOBAL AMNESIA [None]
